FAERS Safety Report 6327046-0 (Version None)
Quarter: 2009Q3

REPORT INFORMATION
  Report Type: 
  Country: None (occurrence: None)
  Receive Date: 20090825
  Receipt Date: 20090728
  Transmission Date: 20100115
  Serious: No
  Sender: FDA-Public Use
  Company Number: US-BAYER-200912855BCC

PATIENT
  Age: 82 Year
  Sex: Female
  Weight: 82 kg

DRUGS (11)
  1. ALEVE (CAPLET) [Suspect]
     Indication: ARTHRITIS
     Dosage: TOTAL DAILY DOSE: 220 MG  UNIT DOSE: 220 MG
     Route: 048
     Dates: start: 20090725, end: 20090727
  2. HYDROCHLOROTHIAZIDE [Concomitant]
  3. OMEPRAZOLE [Concomitant]
  4. METHOTREXATE [Concomitant]
  5. CELEXA [Concomitant]
     Dosage: UNIT DOSE: 10 MG
  6. FOLIC ACID [Concomitant]
  7. METOPROLOL [Concomitant]
  8. BENAZEPRIL HYDROCHLORIDE [Concomitant]
     Dosage: UNIT DOSE: 20 MG
  9. AMITRIPTYLINE AND PERPHENAZINE [Concomitant]
  10. CENTRUM SILVER MULTIVITAMIN [Concomitant]
  11. FINEST NATURAL CALCIUM SUPPLEMENT [Concomitant]

REACTIONS (1)
  - DIARRHOEA [None]
